FAERS Safety Report 4635890-0 (Version None)
Quarter: 2005Q2

REPORT INFORMATION
  Report Type: 
  Country: None (occurrence: None)
  Receive Date: 20050415
  Receipt Date: 20050408
  Transmission Date: 20051028
  Serious: Yes (Other)
  Sender: FDA-Public Use
  Company Number: CA-GLAXOSMITHKLINE-A0553871A

PATIENT
  Age: 76 Year
  Sex: Female

DRUGS (12)
  1. AVANDIA [Suspect]
     Indication: DRUG USE FOR UNKNOWN INDICATION
     Dosage: 2MG PER DAY
     Route: 048
  2. ACIDOPHILUS [Concomitant]
  3. AVALIDE [Concomitant]
  4. COMBIVENT [Concomitant]
  5. DIGOXIN [Concomitant]
  6. ASPIRIN [Concomitant]
  7. FUROSEMIDE [Concomitant]
  8. GLYBURIDE [Concomitant]
  9. INSULIN [Concomitant]
  10. L-THYROXINE [Concomitant]
  11. LEVAQUIN [Concomitant]
  12. TRAVATAN [Concomitant]

REACTIONS (2)
  - ATRIAL FIBRILLATION [None]
  - NEUTROPENIA [None]
